FAERS Safety Report 7818992-7 (Version None)
Quarter: 2011Q4

REPORT INFORMATION
  Report Type: 
  Country: None (occurrence: None)
  Receive Date: 20111018
  Receipt Date: 20111006
  Transmission Date: 20120403
  Serious: No
  Sender: FDA-Public Use
  Company Number: US-JNJFOC-20111003959

PATIENT
  Sex: Female
  Weight: 65.77 kg

DRUGS (4)
  1. FENTANYL-100 [Suspect]
     Route: 062
     Dates: start: 20110101
  2. FENTANYL-100 [Suspect]
     Indication: INTERVERTEBRAL DISC DEGENERATION
     Route: 062
     Dates: start: 20110101
  3. FENTANYL-100 [Suspect]
     Indication: SPONDYLITIS
     Route: 062
     Dates: start: 20110101, end: 20110101
  4. FENTANYL-100 [Suspect]
     Route: 062
     Dates: start: 20110101, end: 20110101

REACTIONS (5)
  - SKIN PAPILLOMA [None]
  - PRODUCT QUALITY ISSUE [None]
  - WRONG TECHNIQUE IN DRUG USAGE PROCESS [None]
  - THERMAL BURN [None]
  - DRUG EFFECT DECREASED [None]
